FAERS Safety Report 25135780 (Version 1)
Quarter: 2025Q1

REPORT INFORMATION
  Report Type: Spontaneous
  Country: CN (occurrence: CN)
  Receive Date: 20250328
  Receipt Date: 20250328
  Transmission Date: 20250409
  Serious: Yes (Hospitalization)
  Sender: CHEPLAPHARM
  Company Number: CN-CHEPLA-2025003839

PATIENT
  Age: 43 Year
  Sex: Male
  Weight: 62.5 kg

DRUGS (3)
  1. OLANZAPINE [Suspect]
     Active Substance: OLANZAPINE
     Indication: Dementia
     Route: 048
     Dates: start: 20250122, end: 20250317
  2. OLANZAPINE [Suspect]
     Active Substance: OLANZAPINE
     Indication: Dementia
     Dosage: ADJUSTED TO 10MG, QD (ONCE A DAY)?DAILY DOSE: 10 MILLIGRAM
     Route: 048
  3. TRIHEXYPHENIDYL [Concomitant]
     Active Substance: TRIHEXYPHENIDYL
     Indication: Dementia
     Dosage: DAILY DOSE: 2 MILLIGRAM

REACTIONS (3)
  - Akathisia [Recovered/Resolved]
  - Restlessness [Recovered/Resolved]
  - Extrapyramidal disorder [Recovered/Resolved]

NARRATIVE: CASE EVENT DATE: 20250226
